FAERS Safety Report 5058134-7 (Version None)
Quarter: 2006Q3

REPORT INFORMATION
  Report Type: 
  Country: None (occurrence: None)
  Receive Date: 20060721
  Receipt Date: 20060713
  Transmission Date: 20061208
  Serious: Yes (Hospitalization)
  Sender: FDA-Public Use
  Company Number: CH-GLAXOSMITHKLINE-B0431370A

PATIENT
  Age: 81 Year
  Sex: Female

DRUGS (6)
  1. DEROXAT [Suspect]
     Indication: AFFECTIVE DISORDER
     Route: 048
  2. DARIFENACIN [Suspect]
     Indication: URINARY INCONTINENCE
     Dosage: 7.5ML PER DAY
     Route: 048
     Dates: start: 20060601
  3. ISOPTIN [Concomitant]
     Indication: DRUG USE FOR UNKNOWN INDICATION
     Route: 048
  4. CIPROFLOXACIN HYDROCHLORIDE [Concomitant]
     Indication: URINARY TRACT INFECTION
     Route: 065
     Dates: start: 20060626, end: 20060627
  5. AVELOX [Concomitant]
     Indication: URINARY TRACT INFECTION
     Route: 048
     Dates: start: 20060626, end: 20060627
  6. ASPIRIN [Concomitant]
     Indication: DRUG USE FOR UNKNOWN INDICATION
     Route: 048

REACTIONS (4)
  - DRUG INTERACTION [None]
  - DRY MOUTH [None]
  - GENERAL PHYSICAL HEALTH DETERIORATION [None]
  - HYPONATRAEMIA [None]
